FAERS Safety Report 15857084 (Version 1)
Quarter: 2019Q1

REPORT INFORMATION
  Report Type: Spontaneous
  Country: US (occurrence: US)
  Receive Date: 20190122
  Receipt Date: 20190122
  Transmission Date: 20190417
  Serious: Yes (Hospitalization)
  Sender: FDA-Public Use
  Company Number: None

PATIENT
  Age: 18 Year
  Sex: Male

DRUGS (15)
  1. PULMOZYME [Concomitant]
     Active Substance: DORNASE ALFA
  2. SODIUM CHLORIDE. [Concomitant]
     Active Substance: SODIUM CHLORIDE
  3. CREON [Suspect]
     Active Substance: PANCRELIPASE AMYLASE\PANCRELIPASE LIPASE\PANCRELIPASE PROTEASE
     Indication: CYSTIC FIBROSIS
     Route: 048
     Dates: start: 20130910
  4. LORATADINE. [Concomitant]
     Active Substance: LORATADINE
  5. LANSOPRAZOLE. [Concomitant]
     Active Substance: LANSOPRAZOLE
  6. FLUTICASONE. [Concomitant]
     Active Substance: FLUTICASONE
  7. ORKAMBI [Concomitant]
     Active Substance: IVACAFTOR\LUMACAFTOR
  8. ALBUTEROL. [Concomitant]
     Active Substance: ALBUTEROL
  9. DEKAS PLUS [Concomitant]
  10. FLUTICASONE. [Concomitant]
     Active Substance: FLUTICASONE
  11. AMOXICILLIN. [Concomitant]
     Active Substance: AMOXICILLIN
  12. CAYSTON [Concomitant]
     Active Substance: AZTREONAM
  13. LANSOPRAZOLE. [Concomitant]
     Active Substance: LANSOPRAZOLE
  14. VENTOLIN [Concomitant]
     Active Substance: ALBUTEROL SULFATE
  15. BETHKIS [Concomitant]
     Active Substance: TOBRAMYCIN

REACTIONS (1)
  - Gastrointestinal disorder [None]

NARRATIVE: CASE EVENT DATE: 20190115
